FAERS Safety Report 17009506 (Version 1)
Quarter: 2019Q4

REPORT INFORMATION
  Report Type: Spontaneous
  Country: None (occurrence: US)
  Receive Date: 20191108
  Receipt Date: 20191108
  Transmission Date: 20200122
  Serious: Yes (Hospitalization, Other)
  Sender: FDA-Public Use
  Company Number: US-RECORDATI RARE DISEASES-2076634

PATIENT
  Age: 10 Month
  Sex: Female

DRUGS (1)
  1. CARBAGLU [Suspect]
     Active Substance: CARGLUMIC ACID
     Indication: UREA CYCLE DISORDER

REACTIONS (2)
  - Hospitalisation [Unknown]
  - Liver transplant [Unknown]

NARRATIVE: CASE EVENT DATE: 20190723
